FAERS Safety Report 7344794-4 (Version None)
Quarter: 2011Q1

REPORT INFORMATION
  Report Type: 
  Country: None (occurrence: None)
  Receive Date: 20110310
  Receipt Date: 20110302
  Transmission Date: 20110831
  Serious: Yes (Death, Other)
  Sender: FDA-Public Use
  Company Number: JP-AMGEN-JPNCT2011012286

PATIENT
  Age: 80 Year
  Sex: Male
  Weight: 50 kg

DRUGS (6)
  1. IRINOTECAN HYDROCHLORIDE [Concomitant]
     Indication: COLORECTAL CANCER
     Route: 041
     Dates: start: 20101208, end: 20110106
  2. CALCIUM LEVOFOLINATE [Concomitant]
     Indication: COLORECTAL CANCER
     Route: 041
     Dates: start: 20101208, end: 20110106
  3. FLUOROURACIL [Concomitant]
     Indication: COLORECTAL CANCER
     Route: 041
     Dates: start: 20101208, end: 20110106
  4. FLUOROURACIL [Concomitant]
     Route: 041
     Dates: start: 20101208, end: 20110106
  5. PANITUMUMAB [Suspect]
     Indication: COLORECTAL CANCER
     Dosage: 310 MG, Q2WK
     Route: 042
     Dates: start: 20101208, end: 20110106
  6. PANITUMUMAB [Suspect]
     Dosage: UNK, Q2WK
     Route: 042
     Dates: start: 20110202, end: 20110202

REACTIONS (2)
  - INTERSTITIAL LUNG DISEASE [None]
  - GENERAL PHYSICAL HEALTH DETERIORATION [None]
